FAERS Safety Report 16477279 (Version 2)
Quarter: 2019Q3

REPORT INFORMATION
  Report Type: Spontaneous
  Country: DE (occurrence: DE)
  Receive Date: 20190626
  Receipt Date: 20190901
  Transmission Date: 20191004
  Serious: Yes (Hospitalization)
  Sender: FDA-Public Use
  Company Number: DE-TEVA-2019-DE-1068544

PATIENT
  Age: 62 Year
  Sex: Female
  Weight: 180 kg

DRUGS (6)
  1. CIPROFLOXACIN 500 [Suspect]
     Active Substance: CIPROFLOXACIN
     Indication: PSEUDOMONAS INFECTION
     Dosage: 2-3 WEEKS
     Route: 048
     Dates: start: 2015
  2. CIPROFLOXACIN 500 [Suspect]
     Active Substance: CIPROFLOXACIN
     Dosage: 2 WEEKS EVERY 6 HOURS I.V.
     Route: 042
     Dates: end: 2015
  3. CIPROFLOXACIN 500MG BASICS [Suspect]
     Active Substance: CIPROFLOXACIN
     Dosage: 1500 MILLIGRAM DAILY; EVERY 8 HOURS
     Route: 048
     Dates: start: 20180620, end: 20180718
  4. IBUPROFEN. [Concomitant]
     Active Substance: IBUPROFEN
  5. CIPROFLOXACIN 500 [Suspect]
     Active Substance: CIPROFLOXACIN
     Indication: STAPHYLOCOCCAL INFECTION
     Dosage: 2-3  WEEKS
     Route: 048
     Dates: start: 2016
  6. CIPROFLOXACIN 500 [Suspect]
     Active Substance: CIPROFLOXACIN
     Indication: STREPTOCOCCAL INFECTION
     Dosage: 2-3 WEEKS
     Route: 048
     Dates: start: 2017

REACTIONS (10)
  - Joint swelling [Recovered/Resolved with Sequelae]
  - Tendon discomfort [Recovered/Resolved with Sequelae]
  - Dizziness [Recovered/Resolved with Sequelae]
  - Impaired work ability [Recovered/Resolved with Sequelae]
  - Arthralgia [Not Recovered/Not Resolved]
  - Dysgeusia [Recovered/Resolved with Sequelae]
  - Dyspepsia [Recovered/Resolved with Sequelae]
  - Gait disturbance [Recovered/Resolved with Sequelae]
  - Skin discomfort [Recovered/Resolved with Sequelae]
  - Wheelchair user [Not Recovered/Not Resolved]

NARRATIVE: CASE EVENT DATE: 2015
